FAERS Safety Report 24558529 (Version 2)
Quarter: 2024Q4

REPORT INFORMATION
  Report Type: Report from Study
  Country: US (occurrence: US)
  Receive Date: 20241029
  Receipt Date: 20241105
  Transmission Date: 20250115
  Serious: Yes (Hospitalization, Other)
  Sender: UCB
  Company Number: US-UCBSA-2024054073

PATIENT
  Age: 60 Year
  Sex: Female

DRUGS (1)
  1. BRIVARACETAM [Suspect]
     Active Substance: BRIVARACETAM
     Indication: Seizure
     Dosage: 50 MILLIGRAM, 2X/DAY (BID)

REACTIONS (6)
  - Accident at work [Recovering/Resolving]
  - Spinal fracture [Recovering/Resolving]
  - Ankle fracture [Recovering/Resolving]
  - Fall [Unknown]
  - Lower limb fracture [Unknown]
  - Impaired work ability [Recovering/Resolving]

NARRATIVE: CASE EVENT DATE: 20240301
